FAERS Safety Report 9684144 (Version 3)
Quarter: 2013Q4

REPORT INFORMATION
  Report Type: Spontaneous
  Country: IT (occurrence: IT)
  Receive Date: 20131112
  Receipt Date: 20131227
  Transmission Date: 20140711
  Serious: Yes (Hospitalization)
  Sender: FDA-Public Use
  Company Number: IT-ABBVIE-13P-083-1168384-00

PATIENT
  Age: 52 Year
  Sex: Male

DRUGS (9)
  1. NORVIR [Suspect]
     Indication: HIV INFECTION
     Route: 048
     Dates: start: 20131017
  2. GLUCOPHAGE [Suspect]
     Indication: TYPE 2 DIABETES MELLITUS
     Route: 048
  3. SIMVASTATINA [Concomitant]
     Indication: DYSLIPIDAEMIA
  4. PANTOPRAZOLE [Concomitant]
     Indication: PRODUCT USED FOR UNKNOWN INDICATION
  5. METOPROLOLO [Concomitant]
     Indication: PRODUCT USED FOR UNKNOWN INDICATION
  6. REYATAZ [Concomitant]
     Indication: HIV INFECTION
     Route: 048
     Dates: start: 20131017
  7. KIVEXA [Concomitant]
     Indication: HIV INFECTION
     Route: 048
  8. CARDIOASPIRIN [Concomitant]
     Indication: ISCHAEMIC HEART DISEASE PROPHYLAXIS
  9. TRIATEC [Concomitant]
     Indication: HYPERTENSION

REACTIONS (4)
  - Cholestasis [Recovering/Resolving]
  - Abdominal pain [Recovering/Resolving]
  - Drug interaction [Recovering/Resolving]
  - Hypertransaminasaemia [Recovering/Resolving]
